FAERS Safety Report 8870807 (Version 1)
Quarter: 2012Q4

REPORT INFORMATION
  Report Type: 
  Country: US (occurrence: US)
  Receive Date: 20121026
  Receipt Date: 20121026
  Transmission Date: 20130627
  Serious: No
  Sender: FDA-Public Use
  Company Number: US-AMGEN-USASP2012043099

PATIENT
  Age: 52 Year
  Sex: Female

DRUGS (10)
  1. ENBREL [Suspect]
     Indication: PRODUCT USED FOR UNKNOWN INDICATION
     Dosage: 50 mg, qwk
     Route: 058
  2. JANUMET [Concomitant]
     Dosage: 50-500 mg
  3. PLAQUENIL                          /00072602/ [Concomitant]
     Dosage: 200 mg, UNK
  4. METHOTREXATE [Concomitant]
     Dosage: 2.5 mg, UNK
  5. LISINOPRIL [Concomitant]
     Dosage: 20 mg, UNK
  6. MOBIC [Concomitant]
     Dosage: 15 mg, UNK
  7. PREDNISONE [Concomitant]
     Dosage: 5 mg, UNK
  8. FISH OIL [Concomitant]
  9. CALCIUM +D                         /00188401/ [Concomitant]
  10. FOLIC ACID [Concomitant]

REACTIONS (1)
  - Fungal infection [Unknown]
